FAERS Safety Report 6424917-1 (Version None)
Quarter: 2009Q4

REPORT INFORMATION
  Report Type: 
  Country: None (occurrence: None)
  Receive Date: 20091029
  Receipt Date: 20091016
  Transmission Date: 20100525
  Serious: Yes (Other)
  Sender: FDA-Public Use
  Company Number: AVE_01053_2009

PATIENT
  Sex: Female
  Weight: 92.5338 kg

DRUGS (2)
  1. CLONIDINE [Suspect]
     Indication: HYPERTENSION
     Dosage: (0.3 MG, QD, VIA A 1/WEEKLY PATCH TOPICAL)
     Route: 061
     Dates: start: 20090901
  2. OTHER UNSPECIFIED MEDICATIONS [Concomitant]

REACTIONS (4)
  - BLOOD PRESSURE INCREASED [None]
  - DYSPNOEA [None]
  - NO THERAPEUTIC RESPONSE [None]
  - PRODUCT ADHESION ISSUE [None]
